FAERS Safety Report 7223050-9 (Version None)
Quarter: 2011Q1

REPORT INFORMATION
  Report Type: 
  Country: None (occurrence: None)
  Receive Date: 20110112
  Receipt Date: 20110105
  Transmission Date: 20110831
  Serious: Yes (Hospitalization)
  Sender: FDA-Public Use
  Company Number: JP-MERCK-0705USA00511

PATIENT
  Age: 79 Year
  Sex: Male
  Weight: 47 kg

DRUGS (9)
  1. OMEPRAL [Concomitant]
     Route: 048
     Dates: end: 20070221
  2. DIGOXIN [Concomitant]
     Route: 048
     Dates: end: 20070221
  3. URIEF [Concomitant]
     Route: 048
     Dates: end: 20070221
  4. BEPRICOR [Concomitant]
     Route: 048
     Dates: end: 20070221
  5. VERAPAMIL HCL [Concomitant]
     Route: 048
     Dates: end: 20070221
  6. HYZAAR [Suspect]
     Route: 048
     Dates: start: 20070201, end: 20070221
  7. DISOPYRAMIDE [Concomitant]
     Route: 048
  8. ALPRAZOLAM [Concomitant]
     Route: 048
  9. ASPIRIN [Concomitant]
     Route: 048
     Dates: end: 20070221

REACTIONS (7)
  - HYPOCHLORAEMIA [None]
  - HYPOGLYCAEMIA [None]
  - HYPOLIPIDAEMIA [None]
  - HYPONATRAEMIA [None]
  - HYPOALBUMINAEMIA [None]
  - HYPOPROTEINAEMIA [None]
  - HYPOKALAEMIA [None]
